FAERS Safety Report 6219854-1 (Version None)
Quarter: 2009Q2

REPORT INFORMATION
  Report Type: 
  Country: None (occurrence: None)
  Receive Date: 20090605
  Receipt Date: 20090522
  Transmission Date: 20091009
  Serious: Yes (Hospitalization)
  Sender: FDA-Public Use
  Company Number: 2009001573

PATIENT
  Age: 61 Year
  Sex: Male

DRUGS (2)
  1. ERLOTINIB (ERLOTINIB) (TABLET) (ERLOTINIB) [Suspect]
     Indication: NON-SMALL CELL LUNG CANCER
     Dosage: (150 MG, QD), ORAL
     Route: 048
     Dates: start: 20090414
  2. BLINDED RO 4858696 [Suspect]
     Indication: NON-SMALL CELL LUNG CANCER
     Dosage: INTRAVENOUS
     Route: 042
     Dates: start: 20090403

REACTIONS (4)
  - HAEMOGLOBIN DECREASED [None]
  - PAIN [None]
  - PLEURAL FIBROSIS [None]
  - RED BLOOD CELL COUNT DECREASED [None]
